FAERS Safety Report 13685047 (Version 1)
Quarter: 2017Q2

REPORT INFORMATION
  Report Type: Spontaneous
  Country: DE (occurrence: DE)
  Receive Date: 20170623
  Receipt Date: 20170623
  Transmission Date: 20170830
  Serious: Yes (Other)
  Sender: FDA-Public Use
  Company Number: DE-009507513-1706DEU008969

PATIENT
  Sex: Female

DRUGS (2)
  1. NUVARING [Suspect]
     Active Substance: ETHINYL ESTRADIOL\ETONOGESTREL
     Indication: CONTRACEPTION
     Route: 067
  2. PROPOFOL. [Concomitant]
     Active Substance: PROPOFOL
     Indication: LIGHT ANAESTHESIA

REACTIONS (1)
  - Endoscopy upper gastrointestinal tract [Unknown]
